FAERS Safety Report 20692651 (Version 5)
Quarter: 2024Q4

REPORT INFORMATION
  Report Type: Report from Study
  Country: US (occurrence: US)
  Receive Date: 20220409
  Receipt Date: 20241015
  Transmission Date: 20250114
  Serious: Yes (Other)
  Sender: NOVARTIS
  Company Number: US-NOVARTISTESTPH-NVSC2022US079573

PATIENT
  Sex: Female

DRUGS (8)
  1. MAYZENT [Suspect]
     Active Substance: SIPONIMOD
     Indication: Multiple sclerosis
     Dosage: 2 MG, QD (1 TABLET)
     Route: 048
  2. MAYZENT [Suspect]
     Active Substance: SIPONIMOD
     Dosage: 2 MG, QD (1 TABLET)
     Route: 048
  3. MYRBETRIQ [Concomitant]
     Active Substance: MIRABEGRON
     Indication: Product used for unknown indication
     Dosage: UNK
     Route: 065
  4. PROGESTERONE [Concomitant]
     Active Substance: PROGESTERONE
     Indication: Product used for unknown indication
     Dosage: UNK
     Route: 065
  5. CONJUGATED ESTROGENS [Concomitant]
     Active Substance: ESTROGENS, CONJUGATED
     Indication: Product used for unknown indication
     Dosage: UNK
     Route: 065
  6. DALFAMPRIDINE [Concomitant]
     Active Substance: DALFAMPRIDINE
     Indication: Product used for unknown indication
     Dosage: UNK
     Route: 065
  7. CRESTOR [Concomitant]
     Active Substance: ROSUVASTATIN CALCIUM
     Indication: Product used for unknown indication
     Dosage: UNK
     Route: 065
  8. VITAMINS [Concomitant]
     Active Substance: VITAMINS
     Indication: Product used for unknown indication
     Dosage: UNK
     Route: 065

REACTIONS (10)
  - Disorientation [Recovered/Resolved]
  - Gait disturbance [Recovered/Resolved]
  - Balance disorder [Recovered/Resolved]
  - Dizziness [Recovered/Resolved]
  - Headache [Recovered/Resolved]
  - Nausea [Not Recovered/Not Resolved]
  - Headache [Recovered/Resolved]
  - Therapeutic product effect incomplete [Recovered/Resolved]
  - Asthma [Unknown]
  - Dyspnoea [Unknown]
